FAERS Safety Report 7762427-X (Version None)
Quarter: 2011Q3

REPORT INFORMATION
  Report Type: 
  Country: None (occurrence: None)
  Receive Date: 20110920
  Receipt Date: 20110912
  Transmission Date: 20111222
  Serious: Yes (Other)
  Sender: FDA-Public Use
  Company Number: US-ROCHE-803395

PATIENT
  Sex: Female

DRUGS (1)
  1. TORADOL [Suspect]
     Indication: MIGRAINE
     Dosage: DOSE FORM: PFS, DOSE: 2-3 TIMES PER MONTH
     Route: 065
     Dates: end: 20020101

REACTIONS (1)
  - ENCEPHALOPATHY [None]
